FAERS Safety Report 8529949-5 (Version None)
Quarter: 2012Q3

REPORT INFORMATION
  Report Type: 
  Country: None (occurrence: None)
  Receive Date: 20120723
  Receipt Date: 20120711
  Transmission Date: 20120928
  Serious: Yes (Other)
  Sender: FDA-Public Use
  Company Number: PHHO2012JP009305

PATIENT
  Age: 96 Year
  Sex: Female

DRUGS (4)
  1. RIVASTIGMINE [Suspect]
     Dosage: 18 MG, QD
     Route: 062
     Dates: start: 20120110, end: 20120222
  2. RIVASTIGMINE [Suspect]
     Indication: DEMENTIA ALZHEIMER'S TYPE
     Dosage: 4.5 MG, QD
     Route: 062
     Dates: start: 20111017, end: 20111114
  3. RIVASTIGMINE [Suspect]
     Dosage: 9 MG, QD
     Route: 062
     Dates: start: 20111115, end: 20111212
  4. RIVASTIGMINE [Suspect]
     Dosage: 13.5 MG, QD
     Route: 062
     Dates: start: 20111213, end: 20120109

REACTIONS (3)
  - NASOPHARYNGITIS [None]
  - PNEUMONIA [None]
  - APPLICATION SITE DERMATITIS [None]
